FAERS Safety Report 16168262 (Version 1)
Quarter: 2019Q2

REPORT INFORMATION
  Report Type: Spontaneous
  Country: GB (occurrence: GB)
  Receive Date: 20190408
  Receipt Date: 20190408
  Transmission Date: 20190711
  Serious: Yes (Disabling, Other)
  Sender: FDA-Public Use
  Company Number: GB-ELI_LILLY_AND_COMPANY-GB201904000503

PATIENT
  Age: 67 Year
  Sex: Female
  Weight: 55.8 kg

DRUGS (8)
  1. CANDESARTAN. [Concomitant]
     Active Substance: CANDESARTAN
     Dosage: UNK UNK, UNKNOWN
     Route: 065
  2. TERIPARATIDE [Suspect]
     Active Substance: TERIPARATIDE
     Indication: OSTEOPOROSIS
     Dosage: UNK UNK, UNKNOWN
     Route: 058
     Dates: start: 201705, end: 201804
  3. PREDNISOLONE. [Concomitant]
     Active Substance: PREDNISOLONE
     Dosage: UNK, UNKNOWN
     Route: 065
  4. METOJECT [Concomitant]
     Active Substance: METHOTREXATE SODIUM
     Dosage: UNK, UNKNOWN
     Route: 065
  5. GAVISCON [ALUMINIUM HYDROXIDE GEL, DRIED;MAGN [Concomitant]
     Dosage: UNK, UNKNOWN
     Route: 065
  6. FOLIC ACID. [Concomitant]
     Active Substance: FOLIC ACID
     Dosage: UNK, UNKNOWN
     Route: 065
  7. LANSOPRAZOLE. [Concomitant]
     Active Substance: LANSOPRAZOLE
     Dosage: UNK, UNKNOWN
     Route: 065
  8. AMITRIPTYLINE [Concomitant]
     Active Substance: AMITRIPTYLINE
     Dosage: UNK, UNKNOWN
     Route: 065

REACTIONS (3)
  - Hypertension [Recovered/Resolved]
  - Retinal vein occlusion [Unknown]
  - Migraine [Unknown]

NARRATIVE: CASE EVENT DATE: 201811
